FAERS Safety Report 14567099 (Version 1)
Quarter: 2018Q1

REPORT INFORMATION
  Report Type: Spontaneous
  Country: US (occurrence: US)
  Receive Date: 20180222
  Receipt Date: 20180222
  Transmission Date: 20180509
  Serious: Yes (Other)
  Sender: FDA-Public Use
  Company Number: None

PATIENT
  Age: 70 Year
  Sex: Male
  Weight: 85.5 kg

DRUGS (6)
  1. LISINIPRIL [Concomitant]
     Active Substance: LISINOPRIL
  2. FIRMAGON [Suspect]
     Active Substance: DEGARELIX ACETATE
     Indication: PROSTATE CANCER
     Route: 058
     Dates: start: 20180220
  3. CHOLINE [Concomitant]
     Active Substance: CHOLINE
  4. C [Concomitant]
  5. D [Concomitant]
  6. COQ10 [Concomitant]
     Active Substance: UBIDECARENONE

REACTIONS (6)
  - Fatigue [None]
  - Injection site pain [None]
  - Injection site swelling [None]
  - Injection site induration [None]
  - Injection site erythema [None]
  - Pain [None]

NARRATIVE: CASE EVENT DATE: 20180220
